FAERS Safety Report 16387670 (Version 1)
Quarter: 2019Q2

REPORT INFORMATION
  Report Type: Spontaneous
  Country: BR (occurrence: BR)
  Receive Date: 20190604
  Receipt Date: 20190604
  Transmission Date: 20190711
  Serious: Yes (Hospitalization, Other)
  Sender: FDA-Public Use
  Company Number: BR-STRIDES ARCOLAB LIMITED-2019SP004747

PATIENT
  Age: 70 Year
  Sex: Male

DRUGS (1)
  1. VANCOMYCIN [Suspect]
     Active Substance: VANCOMYCIN
     Indication: POSTOPERATIVE WOUND INFECTION
     Dosage: UNK
     Route: 042

REACTIONS (5)
  - Erythema [Recovered/Resolved]
  - Linear IgA disease [Recovered/Resolved]
  - Oral mucosal blistering [Recovered/Resolved]
  - Dermatitis bullous [Recovered/Resolved]
  - Genital blister [Recovered/Resolved]
